FAERS Safety Report 11787433 (Version 9)
Quarter: 2017Q2

REPORT INFORMATION
  Report Type: Report from Study
  Country: CO (occurrence: CO)
  Receive Date: 20151130
  Receipt Date: 20170421
  Transmission Date: 20170829
  Serious: Yes (Life-Threatening, Hospitalization, Other)
  Sender: FDA-Public Use
  Company Number: PHHY2015CO154550

PATIENT
  Age: 18 Year
  Sex: Female
  Weight: 54 kg

DRUGS (12)
  1. AZATHIOPRINE. [Concomitant]
     Active Substance: AZATHIOPRINE
     Indication: IMMUNE THROMBOCYTOPENIC PURPURA
     Dosage: 100 MG, QD
     Route: 048
  2. PROPRANOLOL [Concomitant]
     Active Substance: PROPRANOLOL HYDROCHLORIDE
     Indication: TACHYCARDIA
  3. REVOLADE [Suspect]
     Active Substance: ELTROMBOPAG
     Indication: IMMUNE THROMBOCYTOPENIC PURPURA
     Dosage: 25 MG, QD
     Route: 048
     Dates: start: 20150601, end: 201509
  4. CIPROFLOXACIN. [Concomitant]
     Active Substance: CIPROFLOXACIN
     Indication: URINARY TRACT INFECTION
     Dosage: 1 G, QD
     Route: 048
  5. REVOLADE [Suspect]
     Active Substance: ELTROMBOPAG
     Dosage: 75 MG (ONE 50 MG TABLET AND 25 MG TABLET A DAY)
     Route: 048
     Dates: start: 201609, end: 20161101
  6. DEXAMETHASONE. [Concomitant]
     Active Substance: DEXAMETHASONE
     Indication: SURGICAL PRECONDITIONING
     Dosage: 40 MG, QD
     Route: 042
     Dates: start: 20151121
  7. PROPRANOLOL [Concomitant]
     Active Substance: PROPRANOLOL HYDROCHLORIDE
     Indication: TREMOR
     Dosage: 2 DF, QD
     Route: 065
  8. REVOLADE [Suspect]
     Active Substance: ELTROMBOPAG
     Dosage: 75 MG (ONE 50 MG TABLET AND 25 MG TABLET A DAY)
     Route: 048
     Dates: start: 20160601, end: 201608
  9. PREDNISOLONE. [Concomitant]
     Active Substance: PREDNISOLONE
     Indication: IMMUNE THROMBOCYTOPENIC PURPURA
     Dosage: 15 MG, QD
     Route: 048
  10. METHIMAZOLE. [Concomitant]
     Active Substance: METHIMAZOLE
     Indication: HYPERTHYROIDISM
     Dosage: 2 DF, QD
     Route: 065
  11. REVOLADE [Suspect]
     Active Substance: ELTROMBOPAG
     Dosage: 50 MG, QD
     Route: 048
     Dates: start: 201509, end: 20151207
  12. ASCORBIC ACID. [Concomitant]
     Active Substance: ASCORBIC ACID
     Indication: URINARY TRACT INFECTION
     Dosage: 500 MG, QD
     Route: 048

REACTIONS (19)
  - White blood cell count increased [Unknown]
  - White blood cells urine [Unknown]
  - Rash [Unknown]
  - Diarrhoea [Unknown]
  - Occult blood positive [Unknown]
  - Drug hypersensitivity [Unknown]
  - Asthenia [Unknown]
  - Gastrointestinal infection [Recovered/Resolved]
  - Proteinuria [Unknown]
  - Platelet count decreased [Not Recovered/Not Resolved]
  - Neutrophil count increased [Unknown]
  - Mean cell haemoglobin concentration increased [Unknown]
  - Red blood cell count increased [Unknown]
  - Urinary tract infection [Not Recovered/Not Resolved]
  - Mean cell volume decreased [Unknown]
  - Haematuria [Unknown]
  - Immune system disorder [Unknown]
  - Drug ineffective [Unknown]
  - Nitrituria [Unknown]

NARRATIVE: CASE EVENT DATE: 20151122
